FAERS Safety Report 14720014 (Version 1)
Quarter: 2018Q2

REPORT INFORMATION
  Report Type: Spontaneous
  Country: FR (occurrence: FR)
  Receive Date: 20180405
  Receipt Date: 20180405
  Transmission Date: 20180711
  Serious: Yes (Other)
  Sender: FDA-Public Use
  Company Number: FR-CIPLA LTD.-2018FR14400

PATIENT

DRUGS (13)
  1. CYTARABINE. [Suspect]
     Active Substance: CYTARABINE
     Indication: B-CELL LYMPHOMA STAGE II
     Dosage: UNK, 3 CYCLES
     Route: 065
  2. OXALIPLATIN. [Suspect]
     Active Substance: OXALIPLATIN
     Indication: B-CELL LYMPHOMA STAGE II
     Dosage: UNK, 3 CYCLES
     Route: 065
  3. DEXAMETHASONE. [Suspect]
     Active Substance: DEXAMETHASONE
     Indication: B-CELL LYMPHOMA STAGE II
     Dosage: UNK, 3 CYCLES
     Route: 065
  4. PREDNISOLONE. [Suspect]
     Active Substance: PREDNISOLONE
     Indication: B-CELL LYMPHOMA STAGE II
     Dosage: UNK, 8 CYCLES
     Route: 065
  5. RITUXIMAB. [Suspect]
     Active Substance: RITUXIMAB
     Dosage: UNK, 3 CYCLES
     Route: 065
  6. MELPHALAN. [Concomitant]
     Active Substance: MELPHALAN
     Indication: B-CELL LYMPHOMA STAGE II
     Dosage: 140 MG/M2, D-2
     Route: 065
  7. DOXORUBICIN HYDROCHLORIDE. [Suspect]
     Active Substance: DOXORUBICIN HYDROCHLORIDE
     Indication: B-CELL LYMPHOMA STAGE II
     Dosage: UNK, 8 CYCLES
     Route: 065
  8. VINCRISTINE [Suspect]
     Active Substance: VINCRISTINE
     Indication: B-CELL LYMPHOMA STAGE II
     Dosage: UNK, 8 CYCLES
     Route: 065
  9. RITUXIMAB. [Suspect]
     Active Substance: RITUXIMAB
     Indication: B-CELL LYMPHOMA STAGE II
     Dosage: UNK, 8 CYCLES
     Route: 065
  10. ARACYTINE [Concomitant]
     Active Substance: CYTARABINE
     Indication: B-CELL LYMPHOMA STAGE II
     Dosage: 200 MG/M2, D-6
     Route: 065
  11. CYCLOPHOSPHAMIDE. [Suspect]
     Active Substance: CYCLOPHOSPHAMIDE
     Indication: B-CELL LYMPHOMA STAGE II
     Dosage: UNK, 8 CYCLES
     Route: 065
  12. BICNU [Concomitant]
     Active Substance: CARMUSTINE
     Indication: B-CELL LYMPHOMA STAGE II
     Dosage: 300 MG/M2, D-7
     Route: 065
  13. ETOPOPHOS [Concomitant]
     Active Substance: ETOPOSIDE PHOSPHATE
     Indication: B-CELL LYMPHOMA STAGE II
     Dosage: 200 MG/M2, D-6
     Route: 065

REACTIONS (2)
  - Venoocclusive liver disease [Unknown]
  - Bone lesion [Unknown]
